FAERS Safety Report 23488117 (Version 6)
Quarter: 2025Q2

REPORT INFORMATION
  Report Type: Report from Study
  Country: CA (occurrence: CA)
  Receive Date: 20240206
  Receipt Date: 20250623
  Transmission Date: 20250717
  Serious: Yes (Other)
  Sender: TAKEDA
  Company Number: CA-TAKEDA-CA202029812

PATIENT
  Age: 65 Year
  Sex: Male
  Weight: 72.7 kg

DRUGS (50)
  1. HUMAN IMMUNOGLOBULIN G [Suspect]
     Active Substance: HUMAN IMMUNOGLOBULIN G
     Indication: Secondary immunodeficiency
     Dosage: 9 GRAM, 1/WEEK
     Dates: start: 20200910
  2. HUMAN IMMUNOGLOBULIN G [Suspect]
     Active Substance: HUMAN IMMUNOGLOBULIN G
     Indication: Hypogammaglobulinaemia
     Dosage: 9 GRAM, 1/WEEK
  3. HUMAN IMMUNOGLOBULIN G [Suspect]
     Active Substance: HUMAN IMMUNOGLOBULIN G
     Indication: Solid organ transplant
  4. HUMAN IMMUNOGLOBULIN G [Suspect]
     Active Substance: HUMAN IMMUNOGLOBULIN G
     Dosage: UNK UNK, 1/WEEK
  5. HUMAN IMMUNOGLOBULIN G [Suspect]
     Active Substance: HUMAN IMMUNOGLOBULIN G
     Dosage: 9 GRAM, 1/WEEK
     Dates: end: 202407
  6. HUMAN IMMUNOGLOBULIN G [Suspect]
     Active Substance: HUMAN IMMUNOGLOBULIN G
  7. HUMAN IMMUNOGLOBULIN G [Suspect]
     Active Substance: HUMAN IMMUNOGLOBULIN G
     Dosage: 9 GRAM, 1/WEEK
  8. HUMAN IMMUNOGLOBULIN G [Suspect]
     Active Substance: HUMAN IMMUNOGLOBULIN G
  9. HUMAN IMMUNOGLOBULIN G [Suspect]
     Active Substance: HUMAN IMMUNOGLOBULIN G
     Dosage: 9 GRAM, 1/WEEK
  10. HUMAN IMMUNOGLOBULIN G [Suspect]
     Active Substance: HUMAN IMMUNOGLOBULIN G
     Indication: Product used for unknown indication
  11. PROGRAF [Concomitant]
     Active Substance: TACROLIMUS
     Indication: Product used for unknown indication
  12. ZOPICLONE RATIOPHARM [Concomitant]
     Indication: Product used for unknown indication
  13. VALGANCICLOVIR HYDROCHLORIDE [Concomitant]
     Active Substance: VALGANCICLOVIR HYDROCHLORIDE
     Indication: Product used for unknown indication
  14. METOPROLOL [Concomitant]
     Active Substance: METOPROLOL
     Indication: Product used for unknown indication
  15. PREDNISONE [Concomitant]
     Active Substance: PREDNISONE
     Indication: Product used for unknown indication
  16. PANTOPRAZOLE SODIUM [Concomitant]
     Active Substance: PANTOPRAZOLE SODIUM
     Indication: Product used for unknown indication
  17. SULFAMETHOXAZOLE\TRIMETHOPRIM [Concomitant]
     Active Substance: SULFAMETHOXAZOLE\TRIMETHOPRIM
     Indication: Product used for unknown indication
  18. AZITHROMYCIN [Concomitant]
     Active Substance: AZITHROMYCIN
     Indication: Product used for unknown indication
  19. MAGNESIUM GLUCONATE [Concomitant]
     Active Substance: MAGNESIUM GLUCONATE
     Indication: Product used for unknown indication
  20. MYRBETRIQ [Concomitant]
     Active Substance: MIRABEGRON
     Indication: Product used for unknown indication
  21. JAMP FERROUS [Concomitant]
     Indication: Product used for unknown indication
  22. APO CALCIUM CARBONATE [Concomitant]
     Indication: Product used for unknown indication
  23. CO METFORMIN [Concomitant]
     Indication: Product used for unknown indication
  24. KAYEXALATE [Concomitant]
     Active Substance: SODIUM POLYSTYRENE SULFONATE
     Indication: Product used for unknown indication
  25. ASPIRIN [Concomitant]
     Active Substance: ASPIRIN
     Indication: Product used for unknown indication
  26. IMODIUM [Concomitant]
     Active Substance: LOPERAMIDE HYDROCHLORIDE
     Indication: Product used for unknown indication
  27. MELATONIN [Concomitant]
     Active Substance: MELATONIN
     Indication: Product used for unknown indication
  28. TYLENOL EXTRA STRENGTH [Concomitant]
     Active Substance: ACETAMINOPHEN
     Indication: Product used for unknown indication
  29. TOBRAMYCIN [Concomitant]
     Active Substance: TOBRAMYCIN
  30. ALBUTEROL [Concomitant]
     Active Substance: ALBUTEROL
  31. ONDANSETRON [Concomitant]
     Active Substance: ONDANSETRON
  32. ATROVENT HFA [Concomitant]
     Active Substance: IPRATROPIUM BROMIDE
  33. MYCOPHENOLIC ACID [Concomitant]
     Active Substance: MYCOPHENOLIC ACID
  34. OSELTAMIVIR [Concomitant]
     Active Substance: OSELTAMIVIR
  35. ATORVASTATIN [Concomitant]
     Active Substance: ATORVASTATIN
  36. TACROLIMUS [Concomitant]
     Active Substance: TACROLIMUS
  37. AZATHIOPRINE [Concomitant]
     Active Substance: AZATHIOPRINE
  38. PANTOPRAZOLE [Concomitant]
     Active Substance: PANTOPRAZOLE
  39. METOPROLOL [Concomitant]
     Active Substance: METOPROLOL
  40. ASPIRIN [Concomitant]
     Active Substance: ASPIRIN
  41. VITAMIN D [Concomitant]
     Active Substance: VITAMIN D NOS
  42. PREDNISONE [Concomitant]
     Active Substance: PREDNISONE
  43. METFORMIN [Concomitant]
     Active Substance: METFORMIN HYDROCHLORIDE
  44. ZOPICLONE [Concomitant]
     Active Substance: ZOPICLONE
  45. IRON [Concomitant]
     Active Substance: IRON
  46. CALCIUM [Concomitant]
     Active Substance: CALCIUM
  47. MIRABEGRON [Concomitant]
     Active Substance: MIRABEGRON
  48. MYCOPHENOLATE MOFETIL [Concomitant]
     Active Substance: MYCOPHENOLATE MOFETIL
  49. AZITHROMYCIN [Concomitant]
     Active Substance: AZITHROMYCIN
     Indication: Prophylaxis
  50. SULFAMETHOXAZOLE\TRIMETHOPRIM [Concomitant]
     Active Substance: SULFAMETHOXAZOLE\TRIMETHOPRIM
     Indication: Prophylaxis

REACTIONS (8)
  - Venous occlusion [Unknown]
  - Cerebrovascular accident [Unknown]
  - Weight increased [Unknown]
  - Illness [Recovering/Resolving]
  - Infusion site haemorrhage [Unknown]
  - Blood creatinine increased [Unknown]
  - Infusion site discomfort [Unknown]
  - Injection site pain [Recovered/Resolved]

NARRATIVE: CASE EVENT DATE: 20200910
